FAERS Safety Report 19769396 (Version 1)
Quarter: 2021Q3

REPORT INFORMATION
  Report Type: Spontaneous
  Country: US (occurrence: US)
  Receive Date: 20210831
  Receipt Date: 20210831
  Transmission Date: 20211014
  Serious: Yes (Hospitalization)
  Sender: FDA-Public Use
  Company Number: None

PATIENT
  Age: 57 Year
  Sex: Male
  Weight: 112.5 kg

DRUGS (22)
  1. ALPRAZOLAM. [Concomitant]
     Active Substance: ALPRAZOLAM
  2. ENOXAPARIN [Concomitant]
     Active Substance: ENOXAPARIN
  3. EVEROLIMUS. [Concomitant]
     Active Substance: EVEROLIMUS
  4. HYDRALAZINE [Concomitant]
     Active Substance: HYDRALAZINE HYDROCHLORIDE
  5. PROAIR HFA [Concomitant]
     Active Substance: ALBUTEROL SULFATE
  6. IBUPROFEN. [Concomitant]
     Active Substance: IBUPROFEN
  7. ASPIRIN. [Concomitant]
     Active Substance: ASPIRIN
  8. DOXYCYCLINE. [Concomitant]
     Active Substance: DOXYCYCLINE
  9. FUROSEMIDE. [Concomitant]
     Active Substance: FUROSEMIDE
  10. GLUCAGON. [Concomitant]
     Active Substance: GLUCAGON
  11. ATORVASTATIN [Concomitant]
     Active Substance: ATORVASTATIN
  12. LOMOTIL [Concomitant]
     Active Substance: ATROPINE SULFATE\DIPHENOXYLATE HYDROCHLORIDE
  13. CIPROFLOXACIN. [Concomitant]
     Active Substance: CIPROFLOXACIN
  14. DICLOFENAC [Concomitant]
     Active Substance: DICLOFENAC
  15. FOTIVDA [Suspect]
     Active Substance: TIVOZANIB HYDROCHLORIDE
     Indication: RENAL CANCER
     Route: 048
     Dates: start: 20210519
  16. ELIQUIS [Concomitant]
     Active Substance: APIXABAN
  17. DENOSUMAB [Concomitant]
     Active Substance: DENOSUMAB
  18. DEXAMETHASONE. [Concomitant]
     Active Substance: DEXAMETHASONE
  19. NOVOLOG [Concomitant]
     Active Substance: INSULIN ASPART
  20. ALBUTEROL SULFATE. [Concomitant]
     Active Substance: ALBUTEROL SULFATE
  21. AMLODIPINE [Concomitant]
     Active Substance: AMLODIPINE BESYLATE
  22. GLUCOSE [Concomitant]
     Active Substance: DEXTROSE

REACTIONS (2)
  - Post procedural complication [None]
  - Limb operation [None]

NARRATIVE: CASE EVENT DATE: 20210831
